FAERS Safety Report 8136169-5 (Version None)
Quarter: 2012Q1

REPORT INFORMATION
  Report Type: 
  Country: None (occurrence: None)
  Receive Date: 20120214
  Receipt Date: 20120208
  Transmission Date: 20120608
  Serious: Yes (Congenital Anomaly)
  Sender: FDA-Public Use
  Company Number: GXKR2012DE000796

PATIENT

DRUGS (1)
  1. VENLAFAXINE [Suspect]
     Dosage: MATERNAL DOSE: 150 [MG/D ]/SINCE MAY 2011
     Route: 064

REACTIONS (4)
  - CLEFT LIP AND PALATE [None]
  - ATRIOVENTRICULAR SEPTAL DEFECT [None]
  - TRISOMY 21 [None]
  - FOETAL EXPOSURE DURING PREGNANCY [None]
